FAERS Safety Report 24961967 (Version 1)
Quarter: 2025Q1

REPORT INFORMATION
  Report Type: Report from Study
  Country: DE (occurrence: DE)
  Receive Date: 20250212
  Receipt Date: 20250212
  Transmission Date: 20250409
  Serious: Yes (Hospitalization)
  Sender: PFIZER
  Company Number: DE-Merck Healthcare KGaA-2024057456

PATIENT
  Age: 71 Year
  Sex: Female
  Weight: 75 kg

DRUGS (9)
  1. INLYTA [Suspect]
     Active Substance: AXITINIB
     Indication: Renal cell carcinoma
  2. BAVENCIO [Suspect]
     Active Substance: AVELUMAB
     Indication: Renal cell carcinoma
     Dates: start: 20230102
  3. BAVENCIO [Suspect]
     Active Substance: AVELUMAB
     Dates: start: 20230116
  4. ONDANSETRON [Concomitant]
     Active Substance: ONDANSETRON
     Indication: Nausea
     Route: 048
     Dates: start: 20221219
  5. ACETAMINOPHEN [Concomitant]
     Active Substance: ACETAMINOPHEN
     Indication: Prophylaxis
     Dosage: 1000 MG, ALTERNATE DAY (INTERMITTENT)
     Route: 042
     Dates: start: 20230102
  6. METAMIZOL [Concomitant]
     Active Substance: METAMIZOLE SODIUM
     Indication: Prophylaxis
     Dosage: 40 MG, 1X/DAY
     Route: 048
     Dates: start: 20221007
  7. DIMETHINDENE [Concomitant]
     Active Substance: DIMETHINDENE
     Indication: Prophylaxis
     Dosage: 4 MG, 1X/DAY
     Route: 042
     Dates: start: 20230102
  8. PREDNISOLONE SODIUM SUCCINATE [Concomitant]
     Active Substance: PREDNISOLONE SODIUM SUCCINATE
     Indication: Prophylaxis
     Dosage: 100 MG, 1X/DAY
     Route: 042
     Dates: start: 20230102, end: 20230116
  9. EFEROX [Concomitant]
     Active Substance: LEVOTHYROXINE SODIUM
     Indication: Prophylaxis

REACTIONS (5)
  - Haemoptysis [Recovered/Resolved]
  - Diarrhoea [Unknown]
  - Gastritis [Recovered/Resolved]
  - Vomiting [Recovered/Resolved]
  - Nausea [Recovered/Resolved]

NARRATIVE: CASE EVENT DATE: 20240916
